FAERS Safety Report 4667182-8 (Version None)
Quarter: 2005Q2

REPORT INFORMATION
  Report Type: 
  Country: None (occurrence: None)
  Receive Date: 20050520
  Receipt Date: 20050511
  Transmission Date: 20051028
  Serious: Yes (Hospitalization)
  Sender: FDA-Public Use
  Company Number: JP-JNJFOC-20050306636

PATIENT
  Sex: Female

DRUGS (11)
  1. REMICADE [Suspect]
     Dosage: FOURTH INFUSION
     Route: 042
  2. REMICADE [Suspect]
     Indication: RHEUMATOID ARTHRITIS
     Route: 042
  3. METHOTREXATE [Concomitant]
  4. PREDNISOLONE [Concomitant]
     Indication: RHEUMATOID ARTHRITIS
     Route: 049
  5. RIMATIL [Concomitant]
     Indication: RHEUMATOID ARTHRITIS
     Route: 049
  6. VOLTAREN [Concomitant]
     Indication: RHEUMATOID ARTHRITIS
     Route: 054
  7. FOLIAMIN [Concomitant]
     Route: 049
  8. LIPITOR [Concomitant]
     Route: 049
  9. TAKEPRON [Concomitant]
     Route: 049
  10. SELBEX [Concomitant]
     Route: 049
  11. BENET [Concomitant]
     Route: 049

REACTIONS (6)
  - ASCITES [None]
  - NEOPLASM MALIGNANT [None]
  - PERITONITIS [None]
  - PLEURAL EFFUSION [None]
  - PNEUMONIA [None]
  - TUBERCULOSIS [None]
